FAERS Safety Report 23939535 (Version 5)
Quarter: 2024Q3

REPORT INFORMATION
  Report Type: Report from Study
  Country: US (occurrence: US)
  Receive Date: 20240605
  Receipt Date: 20240925
  Transmission Date: 20241016
  Serious: Yes (Hospitalization, Other)
  Sender: GLAXOSMITHKLINE
  Company Number: US-GLAXOSMITHKLINE-US2024067701

PATIENT

DRUGS (2)
  1. MEPOLIZUMAB [Suspect]
     Active Substance: MEPOLIZUMAB
     Indication: Product used for unknown indication
     Dosage: UNK
  2. MEPOLIZUMAB [Suspect]
     Active Substance: MEPOLIZUMAB
     Indication: Product used for unknown indication
     Dosage: UNK

REACTIONS (18)
  - Asthma [Unknown]
  - Pulmonary fibrosis [Unknown]
  - Multiple allergies [Unknown]
  - Hospitalisation [Unknown]
  - Hip arthroplasty [Unknown]
  - Autoimmune disorder [Unknown]
  - Blood chromium increased [Unknown]
  - Illness [Unknown]
  - Asthenia [Unknown]
  - Blood cobalt increased [Unknown]
  - Malaise [Unknown]
  - Dyspnoea [Unknown]
  - Lung disorder [Unknown]
  - Wheezing [Unknown]
  - Cough [Unknown]
  - Wrong technique in device usage process [Unknown]
  - Product dose omission issue [Unknown]
  - Product complaint [Unknown]

NARRATIVE: CASE EVENT DATE: 20240917
